FAERS Safety Report 7350294-8 (Version None)
Quarter: 2011Q1

REPORT INFORMATION
  Report Type: 
  Country: None (occurrence: None)
  Receive Date: 20110314
  Receipt Date: 20110303
  Transmission Date: 20110831
  Serious: Yes (Other)
  Sender: FDA-Public Use
  Company Number: US-ELI_LILLY_AND_COMPANY-US201011000697

PATIENT
  Age: 48 Year
  Sex: Male

DRUGS (4)
  1. ALCOHOL [Concomitant]
  2. CYMBALTA [Suspect]
     Dosage: 10 MG, UNK
     Dates: end: 20101021
  3. LAMICTAL [Concomitant]
     Indication: MOOD SWINGS
  4. CYMBALTA [Suspect]
     Indication: BIPOLAR DISORDER
     Dosage: 20 MG, UNK
     Dates: start: 20070101

REACTIONS (4)
  - INTENTIONAL DRUG MISUSE [None]
  - ALANINE AMINOTRANSFERASE INCREASED [None]
  - ASPARTATE AMINOTRANSFERASE INCREASED [None]
  - OFF LABEL USE [None]
